FAERS Safety Report 5205357-X (Version None)
Quarter: 2007Q1

REPORT INFORMATION
  Report Type: 
  Country: None (occurrence: None)
  Receive Date: 20070108
  Receipt Date: 20061227
  Transmission Date: 20070707
  Serious: Yes (Other)
  Sender: FDA-Public Use
  Company Number: 2006SP009029

PATIENT
  Age: 51 Year
  Sex: Female
  Weight: 63.05 kg

DRUGS (2)
  1. PEG-INTRON [Suspect]
     Indication: HEPATITIS C
     Dosage: SC
     Route: 058
     Dates: start: 20060921
  2. RIBAVIRIN [Suspect]
     Indication: HEPATITIS C
     Dosage: PO
     Route: 048
     Dates: start: 20060921

REACTIONS (10)
  - AMNESIA [None]
  - ASTHMA [None]
  - BACK PAIN [None]
  - CONDITION AGGRAVATED [None]
  - ENCEPHALITIS [None]
  - FOOD AVERSION [None]
  - GASTROOESOPHAGEAL REFLUX DISEASE [None]
  - THIRST [None]
  - WEIGHT DECREASED [None]
  - WHITE BLOOD CELL COUNT DECREASED [None]
